FAERS Safety Report 8358630-0 (Version None)
Quarter: 2012Q2

REPORT INFORMATION
  Report Type: 
  Country: None (occurrence: None)
  Receive Date: 20120514
  Receipt Date: 20120403
  Transmission Date: 20120825
  Serious: Yes (Hospitalization)
  Sender: FDA-Public Use
  Company Number: GB-TEVA-337355ISR

PATIENT

DRUGS (4)
  1. TRISENOX [Suspect]
     Indication: ACUTE MYELOID LEUKAEMIA
     Dates: start: 20120224
  2. ATRACURIUM BESYLATE [Suspect]
     Indication: ACUTE MYELOID LEUKAEMIA
     Dates: start: 20120224
  3. GLICAZIDE [Concomitant]
  4. LESTAURTINIB [Suspect]

REACTIONS (1)
  - OSTEONECROSIS [None]
